FAERS Safety Report 21642701 (Version 2)
Quarter: 2022Q4

REPORT INFORMATION
  Report Type: Spontaneous
  Country: JP (occurrence: None)
  Receive Date: 20221125
  Receipt Date: 20221222
  Transmission Date: 20230113
  Serious: Yes (Hospitalization)
  Sender: FDA-Public Use
  Company Number: 2022A365286

PATIENT
  Age: 70 Year
  Sex: Male

DRUGS (4)
  1. IMFINZI [Suspect]
     Active Substance: DURVALUMAB
     Indication: Small cell lung cancer
     Dosage: DOSE UNKNOWN
     Route: 041
     Dates: start: 202210, end: 202210
  2. IMFINZI [Suspect]
     Active Substance: DURVALUMAB
     Indication: Small cell lung cancer
     Dosage: DOSE UNKNOWN
     Route: 041
  3. ETOPOSIDE [Suspect]
     Active Substance: ETOPOSIDE
     Indication: Small cell lung cancer
     Dosage: DOSE UNKNOWN, DAY 1, 2 AND 3 OF EACH CYCLE
     Route: 065
     Dates: start: 202210
  4. CARBOPLATIN [Suspect]
     Active Substance: CARBOPLATIN
     Indication: Small cell lung cancer
     Dosage: DOSE UNKNOWN
     Route: 065
     Dates: start: 202210

REACTIONS (1)
  - Arteriospasm coronary [Recovered/Resolved]

NARRATIVE: CASE EVENT DATE: 20221001
